FAERS Safety Report 9853570 (Version 1)
Quarter: 2014Q1

REPORT INFORMATION
  Report Type: Spontaneous
  Country: GB (occurrence: GB)
  Receive Date: 20140129
  Receipt Date: 20140129
  Transmission Date: 20141002
  Serious: Yes (Other)
  Sender: FDA-Public Use
  Company Number: GB-ACTAVIS-2014-00909

PATIENT
  Age: 67 Year
  Sex: Female

DRUGS (2)
  1. CLOPIDOGREL BISULFATE (UNKNOWN) [Suspect]
     Indication: TRANSIENT ISCHAEMIC ATTACK
     Dosage: 75 MG, DAILY
     Route: 048
     Dates: start: 201007
  2. FLUPENTHIXOL [Concomitant]
     Indication: BIPOLAR DISORDER
     Dosage: 10 MG, 1/WEEK
     Route: 030

REACTIONS (1)
  - Neutropenia [Unknown]
